FAERS Safety Report 9571841 (Version 1)
Quarter: 2013Q3

REPORT INFORMATION
  Report Type: Spontaneous
  Country: US (occurrence: None)
  Receive Date: 20130930
  Receipt Date: 20130930
  Transmission Date: 20140515
  Serious: Yes (Other)
  Sender: FDA-Public Use
  Company Number: None

PATIENT
  Age: 89 Year
  Sex: Female
  Weight: 39.01 kg

DRUGS (14)
  1. PROLIA [Suspect]
     Indication: OSTEOPOROSIS
     Dates: start: 20121214, end: 20130927
  2. PREDNISONE [Concomitant]
  3. METHOTREXATE [Concomitant]
  4. ASA [Concomitant]
  5. ALPHAGEN [Concomitant]
  6. ATROVENT [Concomitant]
  7. FOLIC ACID [Concomitant]
  8. FUROSEMIDE [Concomitant]
  9. LISINOPRIL [Concomitant]
  10. MIRALAX [Concomitant]
  11. TRAVATAN [Concomitant]
  12. VIACTIV [Concomitant]
  13. VITAMIN A [Concomitant]
  14. VITAMIN D [Concomitant]

REACTIONS (1)
  - Osteonecrosis of jaw [None]
